FAERS Safety Report 7096009-2 (Version None)
Quarter: 2010Q4

REPORT INFORMATION
  Report Type: 
  Country: None (occurrence: None)
  Receive Date: 20101111
  Receipt Date: 20090507
  Transmission Date: 20110411
  Serious: No
  Sender: FDA-Public Use
  Company Number: US-KINGPHARMUSA00001-K200900563

PATIENT
  Sex: Female
  Weight: 114.74 kg

DRUGS (3)
  1. LEVOXYL [Suspect]
     Indication: THYROIDECTOMY
     Dosage: 100 MCG, QD
     Route: 048
     Dates: start: 20090201
  2. LEVOXYL [Suspect]
     Dosage: 200 MCG, QD
     Route: 048
     Dates: end: 20090201
  3. LEVOXYL [Suspect]
     Dosage: 200 MCG, BID
     Route: 048

REACTIONS (2)
  - ALOPECIA [None]
  - WEIGHT INCREASED [None]
